FAERS Safety Report 6162358-5 (Version None)
Quarter: 2009Q2

REPORT INFORMATION
  Report Type: 
  Country: None (occurrence: None)
  Receive Date: 20090421
  Receipt Date: 20070614
  Transmission Date: 20091009
  Serious: No
  Sender: FDA-Public Use
  Company Number: US-SOLVAY-00207032758

PATIENT
  Age: 1 Day
  Sex: Male
  Weight: 3.5 kg

DRUGS (2)
  1. VITAMIN AND MINERAL PRENATAL SUPPLEMENT W/ FOLIC ACID CAP [Concomitant]
     Indication: PREGNANCY
     Dosage: DAILY DOSE:  UNKNOWN
     Route: 015
  2. ANDROGEL [Suspect]
     Indication: DRUG EXPOSURE DURING PREGNANCY
     Dosage: DAILY DOSE:  UNKNOWN
     Route: 015

REACTIONS (1)
  - JAUNDICE [None]
